FAERS Safety Report 12167245 (Version 2)
Quarter: 2016Q2

REPORT INFORMATION
  Report Type: Spontaneous
  Country: US (occurrence: US)
  Receive Date: 20160310
  Receipt Date: 20160412
  Transmission Date: 20160815
  Serious: Yes (Other)
  Sender: FDA-Public Use
  Company Number: GXBR2016US000879

PATIENT
  Age: 48 Year
  Sex: Female
  Weight: 70.3 kg

DRUGS (4)
  1. AMPHETAMINE COMBINATION TABLETS [Suspect]
     Active Substance: AMPHETAMINE
     Indication: ATTENTION DEFICIT/HYPERACTIVITY DISORDER
     Dosage: 5 MG, BID
     Route: 048
     Dates: start: 20160223, end: 20160223
  2. ATIVAN [Suspect]
     Active Substance: LORAZEPAM
     Indication: INSOMNIA
     Dosage: .125 MG, QHS
     Route: 048
     Dates: start: 20160220
  3. AMPHETAMINE COMBINATION TABLETS [Suspect]
     Active Substance: AMPHETAMINE
     Dosage: 7.5 MG, BID
     Route: 048
     Dates: start: 20160224, end: 20160226
  4. EMERGEN C [Suspect]
     Active Substance: MINERALS\VITAMINS
     Indication: VITAMIN SUPPLEMENTATION
     Dosage: 2 DF WITH 20 OZ WATER
     Route: 065

REACTIONS (12)
  - Somnolence [Recovering/Resolving]
  - Tachycardia [Recovering/Resolving]
  - Memory impairment [Not Recovered/Not Resolved]
  - Hypotension [Recovering/Resolving]
  - Chapped lips [Recovering/Resolving]
  - Pollakiuria [Recovering/Resolving]
  - Incorrect dose administered [Unknown]
  - Affect lability [Recovering/Resolving]
  - Vision blurred [Recovering/Resolving]
  - Drug ineffective [Recovering/Resolving]
  - Mental impairment [Recovering/Resolving]
  - Dehydration [Recovering/Resolving]

NARRATIVE: CASE EVENT DATE: 20160224
